FAERS Safety Report 9016179 (Version 1)
Quarter: 2013Q1

REPORT INFORMATION
  Report Type: Spontaneous
  Country: US (occurrence: US)
  Receive Date: 20130116
  Receipt Date: 20130116
  Transmission Date: 20140127
  Serious: Yes (Hospitalization, Other)
  Sender: FDA-Public Use
  Company Number: CHPA2013US000852

PATIENT
  Age: 64 Year
  Sex: Female

DRUGS (2)
  1. CONTROL STEP 3 7 MG [Suspect]
     Indication: SMOKING CESSATION THERAPY
     Dosage: 21 MG, QD
     Route: 062
     Dates: start: 2010
  2. PREDNISONE [Concomitant]

REACTIONS (4)
  - Dyspnoea [Unknown]
  - Chronic obstructive pulmonary disease [Not Recovered/Not Resolved]
  - Nasopharyngitis [Unknown]
  - Expired drug administered [Unknown]
